FAERS Safety Report 16173916 (Version 1)
Quarter: 2019Q2

REPORT INFORMATION
  Report Type: Spontaneous
  Country: US (occurrence: US)
  Receive Date: 20190409
  Receipt Date: 20190409
  Transmission Date: 20190711
  Serious: No
  Sender: FDA-Public Use
  Company Number: US-GLAXOSMITHKLINE-US2019GSK058702

PATIENT
  Age: 61 Year
  Sex: Female

DRUGS (1)
  1. NUCALA [Suspect]
     Active Substance: MEPOLIZUMAB
     Indication: PRODUCT USED FOR UNKNOWN INDICATION
     Dosage: UNK
     Dates: start: 20190311

REACTIONS (6)
  - Diarrhoea [Recovered/Resolved]
  - Throat tightness [Unknown]
  - Urticaria [Recovered/Resolved]
  - Swelling face [Recovered/Resolved]
  - Wheezing [Unknown]
  - Malaise [Unknown]

NARRATIVE: CASE EVENT DATE: 20190311
